FAERS Safety Report 9829386 (Version 3)
Quarter: 2014Q2

REPORT INFORMATION
  Report Type: Report from Study
  Country: US (occurrence: US)
  Receive Date: 20140120
  Receipt Date: 20140421
  Transmission Date: 20141212
  Serious: Yes (Hospitalization, Other)
  Sender: FDA-Public Use
  Company Number: US-BIOGENIDEC-2014BI004114

PATIENT
  Age: 60 Year
  Sex: Female
  Weight: 87 kg

DRUGS (21)
  1. TYSABRI [Suspect]
     Indication: MULTIPLE SCLEROSIS
     Route: 042
     Dates: start: 20090602, end: 20131016
  2. TYSABRI [Suspect]
     Indication: MULTIPLE SCLEROSIS
     Route: 042
     Dates: start: 20140219
  3. BISOPROLOL [Concomitant]
     Route: 048
     Dates: start: 20110304
  4. HCTZ [Concomitant]
     Route: 048
     Dates: start: 20110304
  5. ASPIRIN [Concomitant]
     Route: 048
     Dates: start: 20110304
  6. ESTRADIOL [Concomitant]
     Dates: start: 20110523
  7. VITAMIN C [Concomitant]
     Route: 048
     Dates: start: 20110304
  8. VITAMIN D3 [Concomitant]
     Route: 048
     Dates: start: 20110304
  9. LYRICA [Concomitant]
     Route: 048
     Dates: start: 20130926
  10. CARBAMAZEPINE [Concomitant]
     Route: 048
     Dates: start: 20130313
  11. ZOFRAN [Concomitant]
     Indication: NAUSEA
     Dates: start: 20130408
  12. BACLOFEN [Concomitant]
     Route: 048
     Dates: start: 20130513
  13. LOVAZA [Concomitant]
     Route: 048
     Dates: start: 20130926
  14. MIRAPEX [Concomitant]
     Route: 048
     Dates: start: 20130926
  15. AMBIEN [Concomitant]
     Indication: INSOMNIA
  16. PHENERGAN [Concomitant]
  17. FISH OIL [Concomitant]
  18. PRILOSEC [Concomitant]
  19. COMPAZINE [Concomitant]
  20. LIPITOR [Concomitant]
  21. METFORMIN [Concomitant]

REACTIONS (1)
  - Autoimmune haemolytic anaemia [Recovered/Resolved]
